FAERS Safety Report 9082985 (Version 1)
Quarter: 2013Q1

REPORT INFORMATION
  Report Type: Spontaneous
  Country: JP (occurrence: JP)
  Receive Date: 20130130
  Receipt Date: 20130130
  Transmission Date: 20140127
  Serious: Yes (Hospitalization)
  Sender: FDA-Public Use
  Company Number: PHHY2013JP006610

PATIENT
  Age: 54 Year
  Sex: Female
  Weight: 52 kg

DRUGS (2)
  1. ZOLEDRONATE [Suspect]
     Indication: METASTASES TO BONE
     Dosage: 4 MG/MONTH
  2. TRASTUZUMAB [Concomitant]
     Indication: METASTASES TO LIVER
     Dosage: UNK UKN, UNK
     Dates: start: 2005

REACTIONS (16)
  - Tubulointerstitial nephritis [Recovering/Resolving]
  - Fanconi syndrome [Recovering/Resolving]
  - Hypokalaemia [Unknown]
  - Renal impairment [Recovering/Resolving]
  - Dry mouth [Unknown]
  - Polydipsia [Unknown]
  - Polyuria [Unknown]
  - Hypocalcaemia [Unknown]
  - Hypophosphataemia [Unknown]
  - Hypouricaemia [Unknown]
  - Metabolic acidosis [Unknown]
  - Glycosuria [Recovering/Resolving]
  - Albuminuria [Recovering/Resolving]
  - Aminoaciduria [Recovering/Resolving]
  - Renal tubular acidosis [Unknown]
  - Globulinuria [Recovering/Resolving]
